FAERS Safety Report 8881939 (Version 1)
Quarter: 2012Q4

REPORT INFORMATION
  Report Type: 
  Country: US (occurrence: US)
  Receive Date: 20121102
  Receipt Date: 20121102
  Transmission Date: 20130627
  Serious: Yes (Hospitalization)
  Sender: FDA-Public Use
  Company Number: US-JNJFOC-20121014834

PATIENT
  Age: 24 Year
  Sex: Female
  Weight: 36.29 kg

DRUGS (2)
  1. BENADRYL D [Suspect]
     Indication: RASH
     Dosage: 3 teaspoons once
     Route: 065
     Dates: start: 20121018, end: 20121018
  2. BENADRYL ALLERGY ULTRATAB [Suspect]
     Indication: RASH
     Route: 065
     Dates: start: 20121019

REACTIONS (3)
  - Rash [Not Recovered/Not Resolved]
  - Off label use [Unknown]
  - Incorrect dose administered [Unknown]
